FAERS Safety Report 7966291-5 (Version None)
Quarter: 2011Q4

REPORT INFORMATION
  Report Type: 
  Country: None (occurrence: None)
  Receive Date: 20111208
  Receipt Date: 20111205
  Transmission Date: 20120403
  Serious: Yes (Hospitalization, Disabling, Other)
  Sender: FDA-Public Use
  Company Number: US-PFIZER INC-2011151818

PATIENT
  Sex: Female

DRUGS (2)
  1. KLONOPIN [Concomitant]
     Indication: ANXIETY
     Dosage: UNK
     Dates: start: 20060101
  2. CHANTIX [Suspect]
     Indication: SMOKING CESSATION THERAPY
     Dosage: UNK
     Route: 048
     Dates: start: 20070101, end: 20080328

REACTIONS (7)
  - SUICIDE ATTEMPT [None]
  - CONFUSIONAL STATE [None]
  - SUICIDAL IDEATION [None]
  - DEPRESSION [None]
  - DISORIENTATION [None]
  - MOOD SWINGS [None]
  - ABNORMAL DREAMS [None]
